FAERS Safety Report 12447368 (Version 2)
Quarter: 2016Q3

REPORT INFORMATION
  Report Type: Spontaneous
  Country: US (occurrence: US)
  Receive Date: 20160608
  Receipt Date: 20160804
  Transmission Date: 20161109
  Serious: No
  Sender: FDA-Public Use
  Company Number: US-GLAXOSMITHKLINE-US2016073716

PATIENT
  Age: 72 Year
  Sex: Male

DRUGS (13)
  1. FLOVENT DISKUS [Suspect]
     Active Substance: FLUTICASONE PROPIONATE
     Indication: ASTHMA
     Dosage: 110 MCG 1 PUFF(S), BID
     Route: 055
     Dates: start: 2002
  2. BETA SITOSTEROL [Concomitant]
  3. QUINAPRIL. [Suspect]
     Active Substance: QUINAPRIL
     Indication: HYPERTENSION
     Dosage: 10 MG, QD
     Route: 048
     Dates: start: 2011
  4. PREDNISONE. [Concomitant]
     Active Substance: PREDNISONE
  5. SAW PALMETTO [Concomitant]
     Active Substance: SAW PALMETTO
  6. PROVENTIL [Suspect]
     Active Substance: ALBUTEROL
     Indication: ASTHMA
     Dosage: 2 PUFF(S), U
     Route: 055
     Dates: start: 1991
  7. POLICOSANOL [Concomitant]
  8. INCRUSE ELLIPTA [Suspect]
     Active Substance: UMECLIDINIUM BROMIDE
     Indication: ASTHMA
     Dosage: 1 PUFF(S), QD
     Route: 055
     Dates: start: 201605
  9. ADVAIR DISKUS [Suspect]
     Active Substance: FLUTICASONE PROPIONATE\SALMETEROL XINAFOATE
     Indication: ASTHMA
     Dosage: 250/50 MCG 1 PUFF(S), BID
     Route: 055
     Dates: start: 201605
  10. MONTELUKAST [Suspect]
     Active Substance: MONTELUKAST SODIUM
     Dosage: UNK UNK, U
  11. FLOVENT DISKUS [Suspect]
     Active Substance: FLUTICASONE PROPIONATE
     Dosage: 220 MCG 1 PUFF(S), BID
     Route: 055
     Dates: end: 201605
  12. INCRUSE ELLIPTA [Suspect]
     Active Substance: UMECLIDINIUM BROMIDE
     Indication: HYPERTENSION
  13. HYDROCHLOROTHIAZIDE. [Concomitant]
     Active Substance: HYDROCHLOROTHIAZIDE

REACTIONS (18)
  - Dyspnoea [Recovered/Resolved]
  - Spirometry abnormal [Recovering/Resolving]
  - Oedema peripheral [Recovered/Resolved]
  - Drug ineffective [Recovering/Resolving]
  - Micturition urgency [Recovered/Resolved]
  - Device use error [Recovered/Resolved]
  - Peak expiratory flow rate decreased [Recovering/Resolving]
  - Depression [Recovering/Resolving]
  - Adverse event [Unknown]
  - Drug dose omission [Recovered/Resolved]
  - Bronchitis [Recovered/Resolved]
  - Chronic obstructive pulmonary disease [Unknown]
  - Insomnia [Recovering/Resolving]
  - Exercise tolerance decreased [Recovered/Resolved]
  - Blood creatinine increased [Unknown]
  - Blood potassium increased [Unknown]
  - Fatigue [Recovering/Resolving]
  - Intentional product misuse [Unknown]

NARRATIVE: CASE EVENT DATE: 2013
